FAERS Safety Report 18635095 (Version 1)
Quarter: 2020Q4

REPORT INFORMATION
  Report Type: Spontaneous
  Country: US (occurrence: US)
  Receive Date: 20201218
  Receipt Date: 20201218
  Transmission Date: 20210114
  Serious: Yes (Other)
  Sender: FDA-Public Use
  Company Number: US-NOVOPROD-764363

PATIENT
  Age: 77 Year
  Sex: Male

DRUGS (3)
  1. VICTOZA [Suspect]
     Active Substance: LIRAGLUTIDE
     Indication: PRODUCT USED FOR UNKNOWN INDICATION
     Dosage: UNK
     Route: 058
     Dates: start: 2014, end: 20201008
  2. VICTOZA [Suspect]
     Active Substance: LIRAGLUTIDE
     Dosage: 1.2 MG, QD
     Route: 058
     Dates: start: 202012
  3. VICTOZA [Suspect]
     Active Substance: LIRAGLUTIDE
     Dosage: 0.6 MG
     Route: 058
     Dates: start: 202012, end: 202012

REACTIONS (4)
  - Fall [Recovered/Resolved]
  - Injection site pruritus [Recovered/Resolved]
  - Tendon rupture [Recovered/Resolved]
  - Tendon rupture [Recovered/Resolved]

NARRATIVE: CASE EVENT DATE: 2019
